FAERS Safety Report 13519324 (Version 16)
Quarter: 2022Q2

REPORT INFORMATION
  Report Type: Spontaneous
  Country: US (occurrence: US)
  Receive Date: 20170505
  Receipt Date: 20220401
  Transmission Date: 20220720
  Serious: No
  Sender: FDA-Public Use
  Company Number: US-PFIZER INC-2017199196

PATIENT
  Age: 58 Year
  Sex: Female
  Weight: 104.3 kg

DRUGS (17)
  1. SOMATROPIN [Suspect]
     Active Substance: SOMATROPIN
     Indication: Growth hormone deficiency
     Dosage: 0.4 MG, DAILY
     Route: 058
     Dates: start: 2016
  2. SOMATROPIN [Suspect]
     Active Substance: SOMATROPIN
     Indication: Empty sella syndrome
     Dosage: UNK
     Dates: start: 201605
  3. SOMATROPIN [Suspect]
     Active Substance: SOMATROPIN
     Indication: Hypopituitarism
     Dosage: UNK
  4. SOMATROPIN [Suspect]
     Active Substance: SOMATROPIN
     Dosage: UNK
  5. SOMATROPIN [Suspect]
     Active Substance: SOMATROPIN
     Dosage: 0.4 MG, DAILY
  6. SOMATROPIN [Suspect]
     Active Substance: SOMATROPIN
     Dosage: 0.4 MG, (5 DAYS A WEEK)
     Dates: start: 201607
  7. SOMATROPIN [Suspect]
     Active Substance: SOMATROPIN
     Dosage: 3 DOSES (6 DAYS)
  8. SOMATROPIN [Suspect]
     Active Substance: SOMATROPIN
     Dosage: 0.4 MG (4 DAYS A WEEK)
  9. SOMATROPIN [Suspect]
     Active Substance: SOMATROPIN
     Dosage: 0.4 MG (3.5 DAYS A WEEK)
     Dates: start: 2016
  10. VITAMIN D [Concomitant]
     Active Substance: VITAMIN D NOS
     Dosage: 4000 IU, DAILY
  11. HYDROCORTISONE [Concomitant]
     Active Substance: HYDROCORTISONE
     Indication: Adrenal insufficiency
     Dosage: 5 MG, 1X/DAY
  12. HYDROCORTISONE [Concomitant]
     Active Substance: HYDROCORTISONE
     Indication: Empty sella syndrome
     Dosage: UNK UNK, 2X/DAY (IN THE MORNING AND AT NIGHT)
  13. SYNTHROID [Concomitant]
     Active Substance: LEVOTHYROXINE SODIUM
     Dosage: 88 UG, 1X/DAY(AT BEDTIME)/AN HOUR BEFORE MEALS
  14. VITAMIN B12 [Concomitant]
     Active Substance: CYANOCOBALAMIN
     Dosage: 5000 IU, DAILY
  15. HERBALS\TURMERIC [Concomitant]
     Active Substance: HERBALS\TURMERIC
     Dosage: 500 MG, 2X/DAY
  16. LIOTHYRONINE SODIUM [Concomitant]
     Active Substance: LIOTHYRONINE SODIUM
     Indication: Empty sella syndrome
     Dosage: 100 MG
  17. LEVOTHYROXINE [Concomitant]
     Active Substance: LEVOTHYROXINE
     Indication: Empty sella syndrome
     Dosage: 100 MG

REACTIONS (17)
  - Off label use [Unknown]
  - Poor quality product administered [Unknown]
  - Wrong technique in device usage process [Unknown]
  - Expired device used [Unknown]
  - Device leakage [Unknown]
  - Device issue [Unknown]
  - Temperature intolerance [Unknown]
  - Blood sodium increased [Unknown]
  - Intentional product use issue [Unknown]
  - Malaise [Unknown]
  - Blood immunoglobulin G increased [Unknown]
  - Dizziness [Unknown]
  - Hypotension [Unknown]
  - Disorientation [Unknown]
  - Anger [Unknown]
  - Withdrawal syndrome [Unknown]
  - Product dose omission issue [Unknown]

NARRATIVE: CASE EVENT DATE: 20171112
